FAERS Safety Report 21994743 (Version 1)
Quarter: 2023Q1

REPORT INFORMATION
  Report Type: Spontaneous
  Country: US (occurrence: US)
  Receive Date: 20230215
  Receipt Date: 20230215
  Transmission Date: 20230418
  Serious: Yes (Death, Life-Threatening, Hospitalization)
  Sender: FDA-Public Use
  Company Number: US-PFIZER INC-PV202300027331

PATIENT
  Sex: Female
  Weight: 1.12 kg

DRUGS (3)
  1. HYDROCORTISONE ACETATE [Suspect]
     Active Substance: HYDROCORTISONE ACETATE
     Indication: Bronchial fistula
     Dosage: UNK
  2. DOPAMINE HYDROCHLORIDE [Suspect]
     Active Substance: DOPAMINE HYDROCHLORIDE
     Indication: Bronchial fistula
     Dosage: UNK
  3. EPINEPHRINE [Suspect]
     Active Substance: EPINEPHRINE
     Indication: Bronchial fistula
     Dosage: UNK

REACTIONS (1)
  - Treatment failure [Fatal]
